FAERS Safety Report 5952909-5 (Version None)
Quarter: 2008Q4

REPORT INFORMATION
  Report Type: 
  Country: None (occurrence: None)
  Receive Date: 20081114
  Receipt Date: 20081102
  Transmission Date: 20090506
  Serious: Yes (Hospitalization)
  Sender: FDA-Public Use
  Company Number: US-AVENTIS-200817699US

PATIENT
  Age: 82 Year
  Sex: Male

DRUGS (4)
  1. LANTUS [Suspect]
     Route: 058
     Dates: start: 20080301, end: 20080531
  2. LANTUS [Suspect]
     Dosage: DOSE: UNK
     Route: 058
     Dates: start: 20081024
  3. OPTICLIK (INSULIN INJECTION PEN) [Suspect]
     Dates: start: 20081024
  4. OPTICLIK (INSULIN INJECTION PEN) [Suspect]
     Dates: start: 20080301, end: 20080531

REACTIONS (1)
  - PNEUMONIA [None]
